FAERS Safety Report 4986176-6 (Version None)
Quarter: 2006Q2

REPORT INFORMATION
  Report Type: 
  Country: None (occurrence: None)
  Receive Date: 20060428
  Receipt Date: 19950707
  Transmission Date: 20061013
  Serious: Yes (Other)
  Sender: FDA-Public Use
  Company Number: ES-JNJFOC-20060405087

PATIENT
  Age: 57 Year
  Sex: Male

DRUGS (6)
  1. KETOCONAZOLE [Suspect]
     Indication: CANDIDIASIS
     Route: 048
     Dates: start: 19930415, end: 19930430
  2. SEPTRIN [Concomitant]
     Route: 065
     Dates: start: 19930415, end: 19930427
  3. SEPTRIN [Concomitant]
     Route: 065
     Dates: start: 19930415, end: 19930427
  4. INACID [Concomitant]
     Route: 065
     Dates: start: 19930415, end: 19930423
  5. ROCEPHIN KIT [Concomitant]
     Route: 065
     Dates: start: 19930415, end: 19930424
  6. KANBINE [Concomitant]
     Route: 065
     Dates: start: 19930415, end: 19930424

REACTIONS (1)
  - AGRANULOCYTOSIS [None]
